FAERS Safety Report 6716892-7 (Version None)
Quarter: 2010Q2

REPORT INFORMATION
  Report Type: 
  Country: None (occurrence: None)
  Receive Date: 20100510
  Receipt Date: 20100428
  Transmission Date: 20101027
  Serious: No
  Sender: FDA-Public Use
  Company Number: US-JNJFOC-20100500265

PATIENT
  Sex: Male
  Weight: 97.52 kg

DRUGS (2)
  1. FENTANYL CITRATE [Suspect]
     Indication: BACK PAIN
     Route: 062
  2. MS CONTIN [Concomitant]
     Indication: BREAKTHROUGH PAIN
     Dosage: 1 UPTO 6 TIMES A DAY AS NEEDED
     Route: 048

REACTIONS (3)
  - BACK PAIN [None]
  - INSOMNIA [None]
  - TREATMENT NONCOMPLIANCE [None]
